FAERS Safety Report 23918161 (Version 1)
Quarter: 2024Q2

REPORT INFORMATION
  Report Type: Spontaneous
  Country: CN (occurrence: CN)
  Receive Date: 20240530
  Receipt Date: 20240530
  Transmission Date: 20240715
  Serious: Yes (Life-Threatening)
  Sender: FDA-Public Use
  Company Number: CN-BAUSCHBL-2024BNL027255

PATIENT
  Age: 36 Year
  Sex: Male

DRUGS (9)
  1. DEXAMETHASONE [Suspect]
     Active Substance: DEXAMETHASONE
     Indication: Tumour lysis syndrome
     Route: 065
  2. MEROPENEM [Concomitant]
     Active Substance: MEROPENEM
     Indication: Infection
  3. LINEZOLID [Concomitant]
     Active Substance: LINEZOLID
     Indication: Infection
  4. VORICONAZOLE [Concomitant]
     Active Substance: VORICONAZOLE
     Indication: Infection
  5. ALLOPURINOL [Concomitant]
     Active Substance: ALLOPURINOL
     Indication: Infection
     Route: 048
  6. SODIUM BICARBONATE [Concomitant]
     Active Substance: SODIUM BICARBONATE
     Indication: Infection
     Route: 048
  7. VENETOCLAX [Concomitant]
     Active Substance: VENETOCLAX
     Indication: Acute myeloid leukaemia
  8. DECITABINE [Concomitant]
     Active Substance: DECITABINE
     Indication: Acute myeloid leukaemia
  9. TRETINOIN [Concomitant]
     Active Substance: TRETINOIN
     Indication: Acute myeloid leukaemia

REACTIONS (1)
  - Therapy non-responder [Unknown]
